FAERS Safety Report 17614244 (Version 1)
Quarter: 2020Q2

REPORT INFORMATION
  Report Type: Spontaneous
  Country: US (occurrence: US)
  Receive Date: 20200402
  Receipt Date: 20200402
  Transmission Date: 20200713
  Serious: No
  Sender: FDA-Public Use
  Company Number: US-JNJFOC-20200311093

PATIENT
  Sex: Female

DRUGS (1)
  1. WOMENS ROGAINE [Suspect]
     Active Substance: MINOXIDIL
     Indication: MADAROSIS
     Route: 061

REACTIONS (2)
  - Product use in unapproved indication [Unknown]
  - Product administered at inappropriate site [Unknown]
